FAERS Safety Report 9780796 (Version 2)
Quarter: 2014Q1

REPORT INFORMATION
  Report Type: Spontaneous
  Country: JP (occurrence: JP)
  Receive Date: 20131224
  Receipt Date: 20140311
  Transmission Date: 20141002
  Serious: No
  Sender: FDA-Public Use
  Company Number: JP-ELI_LILLY_AND_COMPANY-JP201312006514

PATIENT
  Age: 35 Year
  Sex: Female
  Weight: 65 kg

DRUGS (6)
  1. STRATTERA [Suspect]
     Indication: ATTENTION DEFICIT/HYPERACTIVITY DISORDER
     Dosage: UNK
     Route: 048
     Dates: start: 20131007
  2. STRATTERA [Suspect]
     Dosage: UNK
     Route: 048
     Dates: end: 20131217
  3. RISPERIDONE [Suspect]
     Indication: SCHIZOPHRENIA
     Dosage: UNK
     Route: 048
     Dates: start: 19990724, end: 20140121
  4. RISPERIDONE [Suspect]
     Indication: SCHIZOPHRENIA
     Dosage: UNK
     Route: 048
     Dates: start: 20130730, end: 20140228
  5. SHAKUYAKUKANZOTO [Suspect]
     Indication: HYPERPROLACTINAEMIA
     Dosage: UNK
     Route: 048
     Dates: start: 20131021, end: 20131227
  6. GASMOTIN [Concomitant]
     Dosage: UNK
     Route: 065
     Dates: start: 20131007, end: 20131217

REACTIONS (1)
  - Hepatic function abnormal [Recovered/Resolved]
